FAERS Safety Report 10191075 (Version 2)
Quarter: 2014Q2

REPORT INFORMATION
  Report Type: Spontaneous
  Country: US (occurrence: US)
  Receive Date: 20140523
  Receipt Date: 20140609
  Transmission Date: 20141212
  Serious: Yes (Death, Hospitalization, Other)
  Sender: FDA-Public Use
  Company Number: US-SA-2014SA063815

PATIENT
  Age: 80 Year
  Sex: Male

DRUGS (10)
  1. LUMIZYME [Suspect]
     Indication: GLYCOGEN STORAGE DISEASE TYPE II
     Route: 042
     Dates: start: 20140415, end: 20140513
  2. LUMIZYME [Suspect]
     Indication: GLYCOGEN STORAGE DISEASE TYPE II
     Route: 042
     Dates: start: 20140415, end: 20140513
  3. LUMIZYME [Suspect]
     Indication: GLYCOGEN STORAGE DISEASE TYPE II
     Route: 042
     Dates: start: 20140415, end: 20140513
  4. WARFARIN [Concomitant]
  5. FUROSEMIDE [Concomitant]
  6. KCL [Concomitant]
  7. LISINOPRIL [Concomitant]
  8. CARVEDILOL [Concomitant]
  9. TAMSULOSIN [Concomitant]
  10. TIKOSYN [Concomitant]

REACTIONS (9)
  - Death [Fatal]
  - Intestinal obstruction [Unknown]
  - Cardiac disorder [Unknown]
  - Pulse absent [Unknown]
  - Loss of consciousness [Recovered/Resolved]
  - Shock [Unknown]
  - Apnoea [Unknown]
  - Blood pressure decreased [Unknown]
  - Dizziness [Unknown]
